FAERS Safety Report 8063148-9 (Version None)
Quarter: 2011Q4

REPORT INFORMATION
  Report Type: 
  Country: None (occurrence: None)
  Receive Date: 20111220
  Receipt Date: 20110729
  Transmission Date: 20120403
  Serious: Yes (Other)
  Sender: FDA-Public Use
  Company Number: PHHY2011US68551

PATIENT
  Age: 41 Year
  Sex: Female

DRUGS (1)
  1. MYFORTIC [Suspect]
     Dosage: 180 MG, BID, ORAL
     Route: 048

REACTIONS (1)
  - KIDNEY TRANSPLANT REJECTION [None]
